FAERS Safety Report 8510407-9 (Version None)
Quarter: 2012Q3

REPORT INFORMATION
  Report Type: 
  Country: None (occurrence: None)
  Receive Date: 20120713
  Receipt Date: 20120614
  Transmission Date: 20120928
  Serious: Yes (Other)
  Sender: FDA-Public Use
  Company Number: PHHY2012JP049146

PATIENT
  Age: 38 Year
  Sex: Female

DRUGS (3)
  1. VOLTAREN [Suspect]
     Indication: DYSMENORRHOEA
     Route: 048
  2. BUSCOPAN [Suspect]
     Indication: DYSMENORRHOEA
  3. LEUPROLIDE ACETATE [Concomitant]
     Indication: DYSMENORRHOEA
     Route: 058

REACTIONS (4)
  - DYSMENORRHOEA [None]
  - HAEMORRHAGE [None]
  - PURPURA [None]
  - PLATELET AGGREGATION ABNORMAL [None]
